FAERS Safety Report 6246133-9 (Version None)
Quarter: 2009Q2

REPORT INFORMATION
  Report Type: 
  Country: None (occurrence: None)
  Receive Date: 20090626
  Receipt Date: 20090331
  Transmission Date: 20091009
  Serious: Yes (Hospitalization)
  Sender: FDA-Public Use
  Company Number: A0776398A

PATIENT
  Age: 63 Year
  Sex: Female

DRUGS (5)
  1. IMITREX [Suspect]
     Indication: MIGRAINE
     Route: 048
     Dates: start: 19920101
  2. NORTRIPTYLINE HCL [Suspect]
     Indication: MIGRAINE PROPHYLAXIS
  3. PREMARIN [Concomitant]
  4. NEXIUM [Concomitant]
  5. IMITREX [Concomitant]

REACTIONS (3)
  - HYPERTENSION [None]
  - MALAISE [None]
  - NAUSEA [None]
